FAERS Safety Report 7909912-5 (Version None)
Quarter: 2011Q4

REPORT INFORMATION
  Report Type: 
  Country: None (occurrence: None)
  Receive Date: 20111111
  Receipt Date: 20111102
  Transmission Date: 20120403
  Serious: Yes (Other)
  Sender: FDA-Public Use
  Company Number: US-JNJFOC-20111101349

PATIENT
  Age: 34 Year
  Sex: Male

DRUGS (6)
  1. SYNTHROID [Concomitant]
  2. FOSAMAX [Concomitant]
  3. LIALDA [Concomitant]
  4. REMICADE [Suspect]
     Indication: COLITIS ULCERATIVE
     Route: 042
     Dates: start: 20030301, end: 20110901
  5. IMURAN [Concomitant]
  6. PAXIL [Concomitant]

REACTIONS (2)
  - SKIN PAPILLOMA [None]
  - HYPOTHYROIDISM [None]
